FAERS Safety Report 10146317 (Version 1)
Quarter: 2014Q2

REPORT INFORMATION
  Report Type: Spontaneous
  Country: US (occurrence: None)
  Receive Date: 20140430
  Receipt Date: 20140430
  Transmission Date: 20141212
  Serious: No
  Sender: FDA-Public Use
  Company Number: None

PATIENT
  Age: 32 Year
  Sex: Male
  Weight: 156.49 kg

DRUGS (1)
  1. KEFLEX [Suspect]
     Indication: ARTHROPOD BITE
     Dosage: 1 THREE TIMES DAILY TAKEN BY MOUTH
     Route: 048
     Dates: start: 20140424, end: 20140428

REACTIONS (6)
  - Swelling face [None]
  - Urticaria [None]
  - Asthenia [None]
  - Dizziness [None]
  - Vomiting [None]
  - Pyrexia [None]
